FAERS Safety Report 7211088-7 (Version None)
Quarter: 2010Q4

REPORT INFORMATION
  Report Type: 
  Country: None (occurrence: None)
  Receive Date: 20101223
  Receipt Date: 20101218
  Transmission Date: 20110411
  Serious: Yes (Other)
  Sender: FDA-Public Use
  Company Number: AXC-2010-000359

PATIENT
  Age: 30 Year
  Sex: Female

DRUGS (1)
  1. MESALAMINE [Suspect]
     Indication: COLITIS ULCERATIVE
     Dosage: 1000 MG, QD;

REACTIONS (5)
  - BIOPSY LUNG ABNORMAL [None]
  - CHEST X-RAY ABNORMAL [None]
  - COMPUTERISED TOMOGRAM THORAX ABNORMAL [None]
  - EOSINOPHILIC PNEUMONIA CHRONIC [None]
  - ORGANISING PNEUMONIA [None]
